FAERS Safety Report 17229131 (Version 6)
Quarter: 2020Q2

REPORT INFORMATION
  Report Type: Spontaneous
  Country: PL (occurrence: PL)
  Receive Date: 20200103
  Receipt Date: 20200508
  Transmission Date: 20200713
  Serious: Yes (Death, Other)
  Sender: FDA-Public Use
  Company Number: NVSC2019PL084199

PATIENT
  Age: 55 Year
  Sex: Female
  Weight: 36 kg

DRUGS (15)
  1. CALCIUM FOLINATE [Suspect]
     Active Substance: LEUCOVORIN CALCIUM
     Indication: COLORECTAL CANCER
     Dosage: UNK, CYCLICAL
     Route: 065
     Dates: start: 201802
  2. OXALIPLATIN. [Suspect]
     Active Substance: OXALIPLATIN
     Indication: RECTAL CANCER
     Dosage: 85 MILLIGRAM/SQ. METER, CYCLICAL
     Route: 042
     Dates: start: 20180209
  3. OXALIPLATIN. [Suspect]
     Active Substance: OXALIPLATIN
     Indication: RECTAL CANCER RECURRENT
     Dosage: UNK (DOSE REDUCED, CYCLICAL)
     Route: 042
  4. PANITUMUMAB [Suspect]
     Active Substance: PANITUMUMAB
     Indication: COLORECTAL CANCER
     Dosage: 6 MILLIGRAM/KILOGRAM, CYCLICAL
     Route: 042
     Dates: start: 20180209, end: 20181205
  5. OXALIPLATIN. [Suspect]
     Active Substance: OXALIPLATIN
     Indication: COLORECTAL CANCER
     Dosage: FOLFOX
     Route: 041
     Dates: start: 201802, end: 201901
  6. FOLINIC ACID [Suspect]
     Active Substance: LEUCOVORIN
     Indication: COLORECTAL CANCER
     Dosage: UNK (FOLFOX)
     Route: 065
     Dates: start: 201802, end: 201901
  7. FOLINIC ACID [Suspect]
     Active Substance: LEUCOVORIN
     Indication: RECTAL CANCER
  8. XELODA [Suspect]
     Active Substance: CAPECITABINE
     Indication: COLORECTAL CANCER
     Dosage: UNK
     Route: 048
     Dates: start: 201204, end: 201207
  9. ATROPINE. [Concomitant]
     Active Substance: ATROPINE
     Indication: PRODUCT USED FOR UNKNOWN INDICATION
     Dosage: UNK
     Route: 065
  10. PANITUMUMAB [Suspect]
     Active Substance: PANITUMUMAB
     Indication: RECTAL CANCER RECURRENT
  11. XELODA [Suspect]
     Active Substance: CAPECITABINE
     Dosage: UNK
     Route: 065
     Dates: start: 201210, end: 201303
  12. FOLINIC ACID [Suspect]
     Active Substance: LEUCOVORIN
     Indication: RECTAL CANCER RECURRENT
  13. FLUOROURACIL. [Suspect]
     Active Substance: FLUOROURACIL
     Indication: COLORECTAL CANCER
     Dosage: FOLFOX
     Route: 065
     Dates: start: 201802, end: 201901
  14. DIPHENOXYLATE [Concomitant]
     Active Substance: DIPHENOXYLATE
     Indication: PRODUCT USED FOR UNKNOWN INDICATION
     Dosage: UNK (2.5 MG + 0.025 MG 3 X 2)
     Route: 065
  15. FLUOROURACIL. [Suspect]
     Active Substance: FLUOROURACIL
     Indication: RECTAL CANCER

REACTIONS (15)
  - Short-bowel syndrome [Fatal]
  - Palmar-plantar erythrodysaesthesia syndrome [Fatal]
  - Neuropathy peripheral [Fatal]
  - Quality of life decreased [Fatal]
  - Electrolyte imbalance [Fatal]
  - Hypersensitivity [Unknown]
  - Death [Fatal]
  - Skin atrophy [Fatal]
  - Polyneuropathy [Fatal]
  - Cachexia [Fatal]
  - Diarrhoea [Fatal]
  - Skin toxicity [Unknown]
  - Neutropenia [Fatal]
  - Off label use [Fatal]
  - Dermatitis acneiform [Fatal]

NARRATIVE: CASE EVENT DATE: 2018
